FAERS Safety Report 8886215 (Version 2)
Quarter: 2012Q4

REPORT INFORMATION
  Report Type: 
  Country: TH (occurrence: TH)
  Receive Date: 20121105
  Receipt Date: 20121119
  Transmission Date: 20130627
  Serious: Yes (Hospitalization)
  Sender: FDA-Public Use
  Company Number: TH-BAYER-2012-115573

PATIENT
  Age: 83 Year
  Sex: Female

DRUGS (1)
  1. GADOVIST [Suspect]
     Dosage: 7.5 ml, UNK
     Dates: start: 20121104, end: 20121104

REACTIONS (3)
  - Pulmonary oedema [Recovered/Resolved]
  - Dyspnoea [Recovered/Resolved]
  - Cough [Recovered/Resolved]
